FAERS Safety Report 7568225-4 (Version None)
Quarter: 2011Q2

REPORT INFORMATION
  Report Type: 
  Country: None (occurrence: None)
  Receive Date: 20110623
  Receipt Date: 20110615
  Transmission Date: 20111010
  Serious: Yes (Hospitalization)
  Sender: FDA-Public Use
  Company Number: B0727996A

PATIENT
  Sex: Male

DRUGS (1)
  1. NIQUITIN CQ 4MG LOZENGE [Suspect]
     Dosage: 8MG PER DAY
     Route: 002
     Dates: start: 20110607, end: 20110607

REACTIONS (6)
  - HYPOTENSION [None]
  - BRADYCARDIA [None]
  - HEADACHE [None]
  - COLD SWEAT [None]
  - SYNCOPE [None]
  - MYOSITIS [None]
